FAERS Safety Report 5927433-6 (Version None)
Quarter: 2008Q4

REPORT INFORMATION
  Report Type: 
  Country: None (occurrence: None)
  Receive Date: 20081022
  Receipt Date: 20081022
  Transmission Date: 20090506
  Serious: No
  Sender: FDA-Public Use
  Company Number: None

PATIENT
  Age: 48 Year
  Sex: Female
  Weight: 78.9259 kg

DRUGS (2)
  1. ELOXATIN [Suspect]
     Indication: RECTAL CANCER METASTATIC
     Dosage: 180MG QOW IVSS
     Route: 042
     Dates: start: 20081007
  2. ELOXATIN [Suspect]
     Dates: start: 20081021

REACTIONS (3)
  - MUSCLE SPASMS [None]
  - SPEECH DISORDER [None]
  - WHEEZING [None]
